FAERS Safety Report 4451562-X (Version None)
Quarter: 2004Q3

REPORT INFORMATION
  Report Type: 
  Country: None (occurrence: None)
  Receive Date: 20040915
  Receipt Date: 20040909
  Transmission Date: 20050211
  Serious: Yes (Other)
  Sender: FDA-Public Use
  Company Number: 200413626BCC

PATIENT
  Age: 41 Year
  Sex: Male

DRUGS (2)
  1. ORIGINAL ALKA SELTZER TABLETS [Suspect]
     Dosage: ORAL
     Route: 048
  2. EXCEDRIN (MIGRAINE) [Suspect]

REACTIONS (2)
  - DIARRHOEA [None]
  - DRUG ADDICT [None]
